FAERS Safety Report 7714543-6 (Version None)
Quarter: 2011Q3

REPORT INFORMATION
  Report Type: 
  Country: None (occurrence: None)
  Receive Date: 20110829
  Receipt Date: 20110818
  Transmission Date: 20111222
  Serious: Yes (Life-Threatening, Hospitalization)
  Sender: FDA-Public Use
  Company Number: US-JNJFOC-20110701589

PATIENT
  Sex: Female
  Weight: 39.4 kg

DRUGS (4)
  1. PROTOPIC [Concomitant]
     Route: 061
  2. REMICADE [Suspect]
     Indication: INFLAMMATORY BOWEL DISEASE
     Dosage: DISCONTINUED PRIOR TO ENROLLING IN STUDY
     Route: 042
     Dates: start: 20080601
  3. ACETAZOLAMIDE [Concomitant]
  4. HUMIRA [Concomitant]
     Indication: INFLAMMATORY BOWEL DISEASE
     Dates: start: 20081230

REACTIONS (1)
  - ROTAVIRUS INFECTION [None]
